FAERS Safety Report 25700349 (Version 1)
Quarter: 2025Q3

REPORT INFORMATION
  Report Type: Spontaneous
  Country: US (occurrence: US)
  Receive Date: 20250819
  Receipt Date: 20250819
  Transmission Date: 20251020
  Serious: Yes (Death, Hospitalization, Other)
  Sender: BRISTOL-MYERS SQUIBB COMPANY
  Company Number: US-BRISTOL-MYERS SQUIBB COMPANY-2025-110729

PATIENT
  Age: 16 Year
  Sex: Male

DRUGS (1)
  1. THALOMID [Suspect]
     Active Substance: THALIDOMIDE
     Indication: Osteosarcoma
     Route: 048
     Dates: start: 20250224, end: 20250702

REACTIONS (8)
  - Ewing^s sarcoma recurrent [Fatal]
  - Epistaxis [Unknown]
  - Hypothyroidism [Unknown]
  - Stenotrophomonas infection [Fatal]
  - Streptococcal bacteraemia [Fatal]
  - Respiratory distress [Unknown]
  - Platelet count decreased [Unknown]
  - Off label use [Unknown]

NARRATIVE: CASE EVENT DATE: 20250702
